FAERS Safety Report 7979123-6 (Version None)
Quarter: 2011Q4

REPORT INFORMATION
  Report Type: 
  Country: None (occurrence: None)
  Receive Date: 20111214
  Receipt Date: 20111214
  Transmission Date: 20120403
  Serious: Yes (Other)
  Sender: FDA-Public Use
  Company Number: US-PFIZER INC-2011021376

PATIENT
  Sex: Female
  Weight: 85.714 kg

DRUGS (22)
  1. CHANTIX [Suspect]
     Indication: SMOKING CESSATION THERAPY
     Dosage: 0.5 MG, 1X/DAY
     Route: 048
     Dates: start: 20091101
  2. CHANTIX [Suspect]
     Dosage: 1 MG, 2X/DAY
     Route: 048
     Dates: start: 20110118, end: 20110101
  3. LASIX [Concomitant]
     Indication: FLUID RETENTION
     Dosage: UNK
  4. CHANTIX [Suspect]
     Dosage: UNK, TWO TIMES DAILY
     Route: 048
     Dates: start: 20100101, end: 20100101
  5. CHANTIX [Suspect]
     Dosage: UNK, 1MG TABLET AND A HALF OF 1MG TABLET
     Route: 048
     Dates: start: 20110129, end: 20110101
  6. MULTI-VITAMINS [Concomitant]
     Dosage: UNK
  7. CHANTIX [Suspect]
     Dosage: 2 MG, 1X/DAY
     Route: 048
     Dates: start: 20110127, end: 20110101
  8. LIPITOR [Concomitant]
     Dosage: UNK
  9. SOMA [Concomitant]
     Indication: MUSCLE TIGHTNESS
     Dosage: UNK
  10. CHANTIX [Suspect]
     Dosage: 2 MG, 1X/DAY
     Route: 048
     Dates: start: 20101001, end: 20100101
  11. CHANTIX [Suspect]
     Dosage: UNK, 1MG TABLET IN THE MORNING AND HALF A TABLET OF 1MG IN THE EVENING
     Route: 048
     Dates: start: 20100101
  12. FISH OIL [Concomitant]
     Dosage: UNK
  13. PHENERGAN [Concomitant]
     Indication: NAUSEA
     Dosage: UNK, AS NEEDED
  14. XANAX [Concomitant]
     Indication: ANXIETY
     Dosage: UNK
  15. ZANTAC [Concomitant]
     Indication: DYSPEPSIA
     Dosage: UNK
  16. CHANTIX [Suspect]
     Dosage: 1 MG, 1X/DAY
     Route: 048
     Dates: start: 20110101, end: 20110101
  17. VICODIN [Concomitant]
     Dosage: UNK
  18. PAXIL [Concomitant]
     Dosage: UNK
  19. ZETIA [Concomitant]
     Indication: BLOOD CHOLESTEROL INCREASED
     Dosage: UNK
  20. CHANTIX [Suspect]
     Dosage: 1 MG, 2X/DAY
     Route: 048
     Dates: start: 20110901, end: 20110901
  21. VICODIN [Concomitant]
     Indication: PAIN
     Dosage: UNK, AS NEEDED
  22. ADVAIR DISKUS 100/50 [Concomitant]
     Indication: DYSPNOEA
     Dosage: UNK, AS NEEDED

REACTIONS (6)
  - INFLUENZA [None]
  - ANXIETY [None]
  - OEDEMA MOUTH [None]
  - BLOOD CHOLESTEROL INCREASED [None]
  - DYSPNOEA [None]
  - ORAL MUCOSAL EXFOLIATION [None]
